FAERS Safety Report 25437797 (Version 1)
Quarter: 2025Q2

REPORT INFORMATION
  Report Type: Spontaneous
  Country: FR (occurrence: FR)
  Receive Date: 20250616
  Receipt Date: 20250616
  Transmission Date: 20250716
  Serious: Yes (Other)
  Sender: BAXTER
  Company Number: None

PATIENT
  Age: 72 Year
  Sex: Female

DRUGS (13)
  1. PROPOFOL [Suspect]
     Active Substance: PROPOFOL
     Indication: General anaesthesia
     Route: 042
     Dates: start: 20250124, end: 20250124
  2. PROPOFOL [Suspect]
     Active Substance: PROPOFOL
     Indication: Hysterectomy
  3. ROCURONIUM BROMIDE [Suspect]
     Active Substance: ROCURONIUM BROMIDE
     Indication: General anaesthesia
     Route: 042
     Dates: start: 20250124, end: 20250124
  4. ROCURONIUM BROMIDE [Suspect]
     Active Substance: ROCURONIUM BROMIDE
     Indication: Hysterectomy
  5. REMIFENTANIL HYDROCHLORIDE [Suspect]
     Active Substance: REMIFENTANIL HYDROCHLORIDE
     Indication: General anaesthesia
     Route: 042
     Dates: start: 20250124, end: 20250124
  6. REMIFENTANIL HYDROCHLORIDE [Suspect]
     Active Substance: REMIFENTANIL HYDROCHLORIDE
     Indication: Hysterectomy
  7. KETAMINE [Suspect]
     Active Substance: KETAMINE
     Indication: General anaesthesia
     Route: 042
     Dates: start: 20250124, end: 20250124
  8. KETAMINE [Suspect]
     Active Substance: KETAMINE
     Indication: Hysterectomy
  9. CEFOXITIN [Suspect]
     Active Substance: CEFOXITIN SODIUM
     Indication: Antibiotic prophylaxis
     Route: 042
     Dates: start: 20250124, end: 20250124
  10. CEFOXITIN [Suspect]
     Active Substance: CEFOXITIN SODIUM
     Indication: Hysterectomy
  11. TRANEXAMIC ACID [Suspect]
     Active Substance: TRANEXAMIC ACID
     Indication: Haemorrhage prophylaxis
     Route: 042
     Dates: start: 20250124, end: 20250124
  12. TRANEXAMIC ACID [Suspect]
     Active Substance: TRANEXAMIC ACID
     Indication: Hysterectomy
  13. DEXAMETHASONE [Suspect]
     Active Substance: DEXAMETHASONE
     Indication: Surgery
     Route: 042
     Dates: start: 20250124, end: 20250124

REACTIONS (4)
  - Oxygen saturation decreased [Recovered/Resolved]
  - Anaphylactic reaction [Recovered/Resolved]
  - Hypotension [Recovered/Resolved]
  - Tachycardia [Recovered/Resolved]

NARRATIVE: CASE EVENT DATE: 20250124
